FAERS Safety Report 16094651 (Version 2)
Quarter: 2019Q1

REPORT INFORMATION
  Report Type: Report from Study
  Country: US (occurrence: US)
  Receive Date: 20190320
  Receipt Date: 20190321
  Transmission Date: 20190418
  Serious: Yes (Life-Threatening, Hospitalization)
  Sender: FDA-Public Use
  Company Number: US-ROCHE-2279745

PATIENT
  Age: 79 Year
  Sex: Female
  Weight: 49.58 kg

DRUGS (5)
  1. FLUOROURACIL. [Suspect]
     Active Substance: FLUOROURACIL
     Indication: COLORECTAL CANCER METASTATIC
     Dosage: DAY 1 EVERY CYCLE.
     Route: 042
     Dates: start: 20140210, end: 20140224
  2. OXALIPLATIN. [Suspect]
     Active Substance: OXALIPLATIN
     Indication: COLORECTAL CANCER METASTATIC
     Dosage: DAY 1 EVERY CYCLE.
     Route: 042
     Dates: start: 20140210, end: 20140224
  3. VITAMIN D3 [Suspect]
     Active Substance: CHOLECALCIFEROL
     Indication: COLORECTAL CANCER METASTATIC
     Dosage: DAY 1 OF EVERY CYCLE
     Route: 065
  4. BEVACIZUMAB. [Suspect]
     Active Substance: BEVACIZUMAB
     Indication: COLORECTAL CANCER METASTATIC
     Dosage: DAY 1 EVERY CYCLE.
     Route: 042
     Dates: start: 20140210, end: 20140224
  5. FOLINIC ACID [Suspect]
     Active Substance: LEUCOVORIN
     Indication: COLORECTAL CANCER METASTATIC
     Dosage: DAY 1 EVERY CYCLE.
     Route: 042
     Dates: start: 20140210, end: 20140224

REACTIONS (4)
  - Neutrophil count abnormal [Unknown]
  - Colitis [Unknown]
  - Febrile neutropenia [Unknown]
  - Neutropenia [Unknown]

NARRATIVE: CASE EVENT DATE: 20140309
